FAERS Safety Report 7221506-6 (Version None)
Quarter: 2011Q1

REPORT INFORMATION
  Report Type: 
  Country: None (occurrence: None)
  Receive Date: 20110112
  Receipt Date: 20110104
  Transmission Date: 20110831
  Serious: Yes (Hospitalization)
  Sender: FDA-Public Use
  Company Number: PHHY2011FR01184

PATIENT
  Age: 88 Year
  Sex: Female

DRUGS (7)
  1. EXELON [Suspect]
     Dosage: UNK
     Route: 048
     Dates: start: 20101116, end: 20101117
  2. DEROXAT [Concomitant]
     Dosage: UNK
  3. KARDEGIC [Concomitant]
     Dosage: UNK
  4. EXELON [Suspect]
     Dosage: UNK
     Route: 048
     Dates: start: 20101122, end: 20101126
  5. TRIMETAZIDINE [Concomitant]
     Dosage: UNK
  6. TANAKAN [Concomitant]
     Dosage: UNK
  7. PERINDOPRIL [Concomitant]
     Dosage: UNK

REACTIONS (5)
  - MALAISE [None]
  - VOMITING [None]
  - ABDOMINAL PAIN [None]
  - FALL [None]
  - CYTOLYTIC HEPATITIS [None]
